FAERS Safety Report 7117888-6 (Version None)
Quarter: 2010Q4

REPORT INFORMATION
  Report Type: 
  Country: None (occurrence: None)
  Receive Date: 20101118
  Receipt Date: 20101118
  Transmission Date: 20110411
  Serious: Yes (Death)
  Sender: FDA-Public Use
  Company Number: None

PATIENT
  Age: 87 Year
  Sex: Female

DRUGS (9)
  1. REVLIMID [Suspect]
     Indication: MULTIPLE MYELOMA
     Dosage: 10MG DAILY ORALLY
     Route: 048
     Dates: start: 20080901, end: 20100201
  2. OXYBUTYNIN CHLORIDE [Concomitant]
  3. SALSALATE [Concomitant]
  4. LEVOTHROID [Suspect]
  5. PRILOSEC [Concomitant]
  6. ESTRADIOL [Concomitant]
  7. LACTULOSE [Suspect]
  8. PROZAC [Concomitant]
  9. LACTINEX [Concomitant]

REACTIONS (1)
  - HOSPICE CARE [None]
